FAERS Safety Report 5369869-0 (Version None)
Quarter: 2007Q2

REPORT INFORMATION
  Report Type: 
  Country: None (occurrence: None)
  Receive Date: 20070621
  Receipt Date: 20070606
  Transmission Date: 20071010
  Serious: Yes (Other)
  Sender: FDA-Public Use
  Company Number: 2007RR-08041

PATIENT
  Age: 76 Year
  Sex: Female
  Weight: 69 kg

DRUGS (6)
  1. SIMVASTATIN [Suspect]
     Dosage: 20 MG, UNK, UNK
     Dates: start: 20060605, end: 20060913
  2. ALLOPURINOL (ALLOPURINOL) UNKNOWN [Concomitant]
  3. AMLODIPINE MALEATE [Concomitant]
  4. ASPIRIN [Concomitant]
  5. ATENOLOL [Concomitant]
  6. METFORMIN HYDROCHLORIDE [Concomitant]

REACTIONS (2)
  - DERMATITIS [None]
  - LICHENOID KERATOSIS [None]
